FAERS Safety Report 15331921 (Version 6)
Quarter: 2020Q3

REPORT INFORMATION
  Report Type: Spontaneous
  Country: US (occurrence: US)
  Receive Date: 20180829
  Receipt Date: 20200925
  Transmission Date: 20201102
  Serious: Yes (Other)
  Sender: FDA-Public Use
  Company Number: US-PFIZER INC-2018345158

PATIENT
  Age: 26 Year
  Sex: Male

DRUGS (2)
  1. BENEFIX [Suspect]
     Active Substance: COAGULATION FACTOR IX RECOMBINANT HUMAN\ISOPROPYL ALCOHOL
     Indication: PROPHYLAXIS
     Dosage: UNK (100?120 U/KG (6900 U ? 8289 U))
  2. BENEFIX [Suspect]
     Active Substance: COAGULATION FACTOR IX RECOMBINANT HUMAN\ISOPROPYL ALCOHOL
     Indication: HAEMORRHAGE
     Dosage: UNK (3450 ? 4140 UNITS EVERY 3 DAYS/FOR PROPHY (50?60 U/KG) )

REACTIONS (4)
  - Muscle haemorrhage [Unknown]
  - Weight decreased [Unknown]
  - Myalgia [Unknown]
  - Ankle fracture [Unknown]
